FAERS Safety Report 20313100 (Version 1)
Quarter: 2022Q1

REPORT INFORMATION
  Report Type: Report from Study
  Country: US (occurrence: US)
  Receive Date: 20220109
  Receipt Date: 20220109
  Transmission Date: 20220424
  Serious: Yes (Life-Threatening, Hospitalization)
  Sender: FDA-Public Use
  Company Number: US-SERVIER-S22000044

PATIENT

DRUGS (9)
  1. PEGASPARGASE [Suspect]
     Active Substance: PEGASPARGASE
     Indication: B-cell type acute leukaemia
     Dosage: 2500 IU/M2, D6 OF INDUCTION PHASE
     Route: 042
     Dates: start: 20210906
  2. PEGASPARGASE [Suspect]
     Active Substance: PEGASPARGASE
     Dosage: 2500 IU/M2, D8 OF CNS PHASE
     Route: 042
     Dates: start: 20211210
  3. PEGASPARGASE [Suspect]
     Active Substance: PEGASPARGASE
     Dosage: 2500 IU/M2, EVERY 2 WEEKS IN CONSOLIDATION
     Route: 042
     Dates: start: 20211228
  4. VINCRISTINE SULFATE [Suspect]
     Active Substance: VINCRISTINE SULFATE
     Indication: B-cell type acute leukaemia
     Dosage: 2 MG/M2, D1 OF EACH CYCLE
     Route: 042
     Dates: start: 20210904
  5. DEXAMETHASONE [Suspect]
     Active Substance: DEXAMETHASONE
     Indication: B-cell type acute leukaemia
     Dosage: 6 MG/M2, D1 TO D5 OF EACH CYCLE
     Route: 048
     Dates: start: 20210901
  6. MERCAPTOPURINE [Suspect]
     Active Substance: MERCAPTOPURINE
     Indication: B-cell type acute leukaemia
     Dosage: 50 MG/M2, D1-D14 OF EACH CYCLE
     Route: 048
     Dates: start: 20211002
  7. METHOTREXATE [Suspect]
     Active Substance: METHOTREXATE
     Indication: B-cell type acute leukaemia
     Dosage: 12 MG, TWICE WEEKLY ON D1
     Route: 037
     Dates: start: 20211002
  8. CYTARABINE [Suspect]
     Active Substance: CYTARABINE
     Indication: B-cell type acute leukaemia
     Dosage: 40 MG, TWICE WEEKLY ON D1
     Route: 037
     Dates: start: 20210901
  9. HYDROCORTISONE [Suspect]
     Active Substance: HYDROCORTISONE
     Indication: B-cell type acute leukaemia
     Dosage: 15 MG, TWICE WEEKLY ON D1
     Route: 037
     Dates: start: 20211203

REACTIONS (1)
  - Sepsis [Recovered/Resolved]

NARRATIVE: CASE EVENT DATE: 20211225
